FAERS Safety Report 9513750 (Version 1)
Quarter: 2013Q1

REPORT INFORMATION
  Report Type: Spontaneous
  Country: US (occurrence: None)
  Receive Date: 20130305
  Receipt Date: 20130305
  Transmission Date: 20140127
  Serious: Yes (Hospitalization, Other)
  Sender: FDA-Public Use
  Company Number: 163-21880-12102600

PATIENT
  Age: 74 Year
  Sex: Male
  Weight: 65.32 kg

DRUGS (13)
  1. REVLIMID (LENALIDOMIDE) (CAPSULES) [Suspect]
     Indication: PLASMA CELL MYELOMA
     Dosage: 25 MG, 14 IN 21 D, PO
     Route: 048
     Dates: start: 20120321, end: 20121017
  2. CYTOXAN (CYCLOPHOSPHAMIDE) (UNKNOWN) [Concomitant]
  3. CEFEPIME (CEFEPIME) (UNKNOWN) [Concomitant]
  4. DEXAMETHASONE (DEXAMETHASONE) (UNKNOWN) [Concomitant]
  5. ACYCLOVIR (ACICLOVIR) (UNKNOWN) [Concomitant]
  6. LISINOPRIL (LISINOPRIL) (UNKNOWN) [Concomitant]
  7. ASPIRIN (ACETYLSALICYLCI ACID) (UNKNOWN) [Concomitant]
  8. RED YEAST RICE (MONASCUS PURPUREUS) (UNKNOWN) [Concomitant]
  9. FISH OIL (FISH OIL) (UNKNOWN) [Concomitant]
  10. MULTIVITAMIN WITH IRON (UNKNOWN) [Concomitant]
  11. SAW PALMETTO (SERENOA REPENS) (UNKNOWN) [Concomitant]
  12. VITAMIN B12 (CYANOCOBALAMIN) (UNKNOWN) [Concomitant]
  13. VELCADE [Concomitant]

REACTIONS (3)
  - Pyrexia [None]
  - Fatigue [None]
  - Plasma cell myeloma [None]
